FAERS Safety Report 14870502 (Version 1)
Quarter: 2018Q2

REPORT INFORMATION
  Report Type: Spontaneous
  Country: US (occurrence: US)
  Receive Date: 20180423
  Receipt Date: 20180423
  Transmission Date: 20180711
  Serious: Yes (Hospitalization)
  Sender: FDA-Public Use
  Company Number: None

PATIENT
  Age: 73 Year
  Sex: Male

DRUGS (1)
  1. BICALUTAMIDE 50 MG [Suspect]
     Active Substance: BICALUTAMIDE
     Indication: PROSTATE CANCER
     Route: 048
     Dates: start: 20180314

REACTIONS (5)
  - Nausea [None]
  - Decreased appetite [None]
  - Blood potassium increased [None]
  - Fatigue [None]
  - Blood creatinine increased [None]

NARRATIVE: CASE EVENT DATE: 20180317
